FAERS Safety Report 16227635 (Version 3)
Quarter: 2019Q2

REPORT INFORMATION
  Report Type: Spontaneous
  Country: US (occurrence: US)
  Receive Date: 20190423
  Receipt Date: 20190503
  Transmission Date: 20190711
  Serious: No
  Sender: FDA-Public Use
  Company Number: US-PFIZER INC-2019171275

PATIENT
  Age: 64 Year
  Sex: Female
  Weight: 70.3 kg

DRUGS (1)
  1. CELECOXIB. [Suspect]
     Active Substance: CELECOXIB
     Dosage: UNK

REACTIONS (9)
  - Pain [Unknown]
  - Fibromyalgia [Unknown]
  - Memory impairment [Unknown]
  - Insomnia [Unknown]
  - Bone disorder [Unknown]
  - Drug ineffective [Unknown]
  - Depression [Unknown]
  - Malaise [Unknown]
  - Abdominal pain upper [Unknown]
